FAERS Safety Report 7453957 (Version 5)
Quarter: 2014Q2

REPORT INFORMATION
  Report Type: Spontaneous
  Country: US (occurrence: US)
  Receive Date: 20100706
  Receipt Date: 20140513
  Transmission Date: 20141212
  Serious: Yes (Other)
  Sender: FDA-Public Use
  Company Number: US-BAYER-201026716NA

PATIENT
  Age: 28 Year
  Sex: Female
  Weight: 77.27 kg

DRUGS (10)
  1. YAZ [Suspect]
     Indication: PREMENSTRUAL SYNDROME
     Dosage: UNK UNK, QD
     Route: 048
     Dates: start: 2007, end: 2009
  2. YAZ [Suspect]
     Indication: PREMENSTRUAL DYSPHORIC DISORDER
     Dosage: UNK
     Route: 048
  3. YASMIN [Suspect]
     Indication: PREMENSTRUAL SYNDROME
     Dosage: UNK
     Route: 048
     Dates: start: 2002, end: 2007
  4. YASMIN [Suspect]
     Indication: PREMENSTRUAL DYSPHORIC DISORDER
     Dosage: UNK
     Route: 048
  5. ZANTAC [Concomitant]
     Indication: DYSPEPSIA
  6. PREVACID [Concomitant]
     Indication: DYSPEPSIA
  7. MOTRIN [Concomitant]
     Indication: PAIN
     Dosage: 4 DAILY
  8. LEXAPRO [Concomitant]
     Dosage: 20 MG, UNK
  9. ZOLPIDEM [Concomitant]
     Dosage: 10 MG, UNK
  10. CLARITHROMYCIN [Concomitant]
     Dosage: 500 MG, UNK

REACTIONS (6)
  - Gallbladder disorder [Unknown]
  - Cholelithiasis [None]
  - Pain [None]
  - Injury [None]
  - Emotional distress [None]
  - Anxiety [None]
